FAERS Safety Report 22315034 (Version 1)
Quarter: 2023Q2

REPORT INFORMATION
  Report Type: Spontaneous
  Country: US (occurrence: None)
  Receive Date: 20230511
  Receipt Date: 20230511
  Transmission Date: 20230722
  Serious: Yes (Other)
  Sender: FDA-Public Use
  Company Number: None

PATIENT
  Age: 70 Year
  Sex: Male
  Weight: 81 kg

DRUGS (6)
  1. HYDROCHLOROTHIAZIDE\LISINOPRIL [Suspect]
     Active Substance: HYDROCHLOROTHIAZIDE\LISINOPRIL
  2. Allopurinol 300 mg daily [Concomitant]
  3. Zyrtec 10mg BID MVI daily [Concomitant]
  4. Tylenol 1000 mg q6hr [Concomitant]
  5. prn Sudafed 30 mg a 4-6 hr prn [Concomitant]
  6. VIAGRA [Suspect]
     Active Substance: SILDENAFIL CITRATE

REACTIONS (6)
  - Headache [None]
  - Blindness [None]
  - Deafness [None]
  - Presyncope [None]
  - Metamorphopsia [None]
  - Fear [None]

NARRATIVE: CASE EVENT DATE: 20230506
